FAERS Safety Report 15041528 (Version 2)
Quarter: 2018Q3

REPORT INFORMATION
  Report Type: Report from Study
  Country: JP (occurrence: JP)
  Receive Date: 20180621
  Receipt Date: 20180711
  Transmission Date: 20181010
  Serious: Yes (Other)
  Sender: FDA-Public Use
  Company Number: JP-TAKEDA-2018TJP016337

PATIENT

DRUGS (2)
  1. LANSOPRAZOLE. [Suspect]
     Active Substance: LANSOPRAZOLE
     Indication: HAEMORRHAGE PROPHYLAXIS
     Dosage: 30 MG, QD
     Route: 048
  2. LANSOPRAZOLE. [Suspect]
     Active Substance: LANSOPRAZOLE
     Indication: HAEMORRHAGE PROPHYLAXIS
     Dosage: 30 MG, BID
     Route: 041

REACTIONS (14)
  - Syncope [Unknown]
  - Abdominal pain [Unknown]
  - Pneumonia aspiration [Unknown]
  - Oropharyngeal pain [Unknown]
  - Cystitis [Unknown]
  - Nausea [Unknown]
  - Headache [Unknown]
  - Diarrhoea [Unknown]
  - Blood pressure decreased [Unknown]
  - Gout [Unknown]
  - Pyrexia [Unknown]
  - Perforation [Unknown]
  - Vertigo [Unknown]
  - Off label use [Unknown]
